FAERS Safety Report 5017465-7 (Version None)
Quarter: 2006Q2

REPORT INFORMATION
  Report Type: 
  Country: None (occurrence: None)
  Receive Date: 20060601
  Receipt Date: 20060601
  Transmission Date: 20061013
  Serious: No
  Sender: FDA-Public Use
  Company Number: None

PATIENT
  Sex: Female

DRUGS (1)
  1. LEVAQUIN [Suspect]
     Indication: URINARY TRACT INFECTION
     Dosage: 250MG ONCE DAILY PO
     Route: 048
     Dates: start: 20060426, end: 20060427

REACTIONS (3)
  - DYSARTHRIA [None]
  - SPEECH DISORDER [None]
  - TONGUE DISORDER [None]
